FAERS Safety Report 9300892 (Version 1)
Quarter: 2013Q2

REPORT INFORMATION
  Report Type: Spontaneous
  Country: CA (occurrence: CA)
  Receive Date: 20130521
  Receipt Date: 20130521
  Transmission Date: 20140414
  Serious: Yes (Other)
  Sender: FDA-Public Use
  Company Number: CA-OTSUKA-US-2013-10965

PATIENT
  Age: 19 Month
  Sex: Female

DRUGS (8)
  1. BUSULFEX [Suspect]
     Indication: STEM CELL TRANSPLANT
     Route: 042
  2. CYCLOPHOSPHAMIDE [Concomitant]
     Indication: STEM CELL TRANSPLANT
     Route: 065
  3. ETOPOSIDE [Concomitant]
     Indication: STEM CELL TRANSPLANT
     Route: 065
  4. CYCLOSPORINE [Concomitant]
     Indication: PROPHYLAXIS AGAINST GRAFT VERSUS HOST DISEASE
     Route: 065
  5. GANCICLOVIR [Concomitant]
     Indication: ANTIVIRAL PROPHYLAXIS
     Route: 065
  6. FLUCONAZOLE [Concomitant]
     Indication: ANTIFUNGAL PROPHYLAXIS
     Route: 065
  7. PENCILLIN [Concomitant]
     Indication: ANTIBIOTIC PROPHYLAXIS
     Route: 065
  8. THYMOGLOBULINE [Concomitant]
     Indication: PROPHYLAXIS AGAINST GRAFT VERSUS HOST DISEASE
     Route: 065

REACTIONS (6)
  - Graft versus host disease [Unknown]
  - Respiratory syncytial virus infection [Unknown]
  - Clostridium difficile colitis [Unknown]
  - Hypertension [Unknown]
  - Hyperkalaemia [Unknown]
  - Left ventricular hypertrophy [Unknown]
